FAERS Safety Report 4967726-2 (Version None)
Quarter: 2006Q2

REPORT INFORMATION
  Report Type: 
  Country: None (occurrence: None)
  Receive Date: 20060404
  Receipt Date: 20060327
  Transmission Date: 20061013
  Serious: Yes (Life-Threatening)
  Sender: FDA-Public Use
  Company Number: 2006-140295-NL

PATIENT
  Age: 65 Year
  Sex: Female

DRUGS (2)
  1. MIRTAZAPINE [Suspect]
     Indication: DEPRESSION
     Dosage: 15 MG ORAL
     Route: 048
     Dates: start: 20060120
  2. THYROXINE SODIUM [Concomitant]

REACTIONS (3)
  - BUNDLE BRANCH BLOCK [None]
  - HYPOTENSION [None]
  - HYPOTHERMIA [None]
